FAERS Safety Report 19028426 (Version 4)
Quarter: 2021Q2

REPORT INFORMATION
  Report Type: Report from Study
  Country: CH (occurrence: CH)
  Receive Date: 20210319
  Receipt Date: 20210513
  Transmission Date: 20210717
  Serious: Yes (Death, Other)
  Sender: FDA-Public Use
  Company Number: CH-KYOWAKIRIN-2021BKK004409

PATIENT

DRUGS (2)
  1. POTELIGEO [Suspect]
     Active Substance: MOGAMULIZUMAB-KPKC
     Dosage: 1 MG/KG (DAYS 1, 8, 15, 22)
     Route: 042
     Dates: start: 20201130, end: 20201221
  2. POTELIGEO [Suspect]
     Active Substance: MOGAMULIZUMAB-KPKC
     Indication: CUTANEOUS T-CELL LYMPHOMA RECURRENT
     Dosage: 1 MG/KG, 70 MG (3 CYCLES)
     Route: 042
     Dates: end: 20210212

REACTIONS (3)
  - Sepsis [Fatal]
  - Staphylococcal sepsis [Fatal]
  - General physical health deterioration [Fatal]
